FAERS Safety Report 12602721 (Version 3)
Quarter: 2016Q3

REPORT INFORMATION
  Report Type: Spontaneous
  Country: US (occurrence: US)
  Receive Date: 20160728
  Receipt Date: 20160916
  Transmission Date: 20161109
  Serious: Yes (Other)
  Sender: FDA-Public Use
  Company Number: US-SA-2016SA135196

PATIENT
  Age: 33 Year
  Sex: Female

DRUGS (1)
  1. ICY HOT POWER GEL [Suspect]
     Active Substance: MENTHOL
     Indication: MYALGIA
     Dosage: ROUTE DERMAL
     Dates: start: 20160720, end: 20160720

REACTIONS (8)
  - Application site vesicles [Not Recovered/Not Resolved]
  - Application site swelling [Not Recovered/Not Resolved]
  - Application site pain [Not Recovered/Not Resolved]
  - Application site erythema [Not Recovered/Not Resolved]
  - Scab [Recovering/Resolving]
  - Burns second degree [Not Recovered/Not Resolved]
  - Hypokinesia [Unknown]
  - Scar [Recovering/Resolving]

NARRATIVE: CASE EVENT DATE: 20160720
